FAERS Safety Report 9689451 (Version 3)
Quarter: 2013Q4

REPORT INFORMATION
  Report Type: Report from Study
  Country: DE (occurrence: DE)
  Receive Date: 20131114
  Receipt Date: 20131216
  Transmission Date: 20140711
  Serious: Yes (Hospitalization, Other)
  Sender: FDA-Public Use
  Company Number: DE-GILEAD-2013-0087124

PATIENT
  Sex: Male
  Weight: 89 kg

DRUGS (12)
  1. RANOLAZINE [Suspect]
     Indication: ANGINA PECTORIS
     Dosage: 1000 MG, BID
     Route: 048
     Dates: start: 20130201
  2. RANOLAZINE [Suspect]
     Dosage: 500 MG, BID
     Route: 048
     Dates: start: 20130125, end: 20130201
  3. ISOSORBIDE DINITRATE [Concomitant]
  4. MOLSIDOMINE [Concomitant]
  5. ASA [Concomitant]
  6. RAMIPRIL [Concomitant]
  7. METOHEXAL                          /00376902/ [Concomitant]
  8. INEGY [Concomitant]
  9. L-THYROXINE                        /00068001/ [Concomitant]
  10. CLEXANE [Concomitant]
  11. PANTOZOL                           /01263204/ [Concomitant]
  12. NOVALGIN                           /06276704/ [Concomitant]
     Indication: PAIN

REACTIONS (1)
  - Ileus [Recovered/Resolved]
